FAERS Safety Report 6668626-2 (Version None)
Quarter: 2010Q2

REPORT INFORMATION
  Report Type: 
  Country: None (occurrence: None)
  Receive Date: 20100406
  Receipt Date: 20100331
  Transmission Date: 20101027
  Serious: Yes (Life-Threatening)
  Sender: FDA-Public Use
  Company Number: PHHY2010IT20342

PATIENT

DRUGS (2)
  1. SYNTOCINON [Suspect]
     Indication: CAESAREAN SECTION
     Dosage: 5 IU
     Route: 042
     Dates: start: 20100319
  2. BUPIVACAINA [Concomitant]
     Indication: ANAESTHESIA PROCEDURE
     Dosage: 13 MG
     Dates: start: 20100319, end: 20100319

REACTIONS (8)
  - BRONCHOSPASM [None]
  - CIRCULATORY COLLAPSE [None]
  - CYANOSIS [None]
  - DYSPNOEA [None]
  - HYPOTENSION [None]
  - PRURITUS GENERALISED [None]
  - PSYCHOMOTOR HYPERACTIVITY [None]
  - RESPIRATORY ACIDOSIS [None]
